FAERS Safety Report 18799995 (Version 1)
Quarter: 2021Q1

REPORT INFORMATION
  Report Type: Spontaneous
  Country: US (occurrence: US)
  Receive Date: 20210128
  Receipt Date: 20210128
  Transmission Date: 20210419
  Serious: No
  Sender: FDA-Public Use
  Company Number: US-UNITED THERAPEUTICS-UNT-2021-001370

PATIENT
  Age: 37 Year
  Sex: Female
  Weight: 87.53 kg

DRUGS (3)
  1. AMBRISENTAN [Concomitant]
     Active Substance: AMBRISENTAN
     Indication: PRODUCT USED FOR UNKNOWN INDICATION
     Dosage: UNK
     Route: 065
  2. REMODULIN [Suspect]
     Active Substance: TREPROSTINIL
     Indication: PULMONARY ARTERIAL HYPERTENSION
     Dosage: UNK UNK, CONTINUING
     Route: 058
     Dates: start: 20200507
  3. REMODULIN [Suspect]
     Active Substance: TREPROSTINIL
     Dosage: 0.109 ?G/KG, CONTINUING
     Route: 058

REACTIONS (6)
  - Infusion site erythema [Unknown]
  - Infusion site swelling [Unknown]
  - Intentional medical device removal by patient [Unknown]
  - Infusion site pain [Unknown]
  - Infusion site induration [Unknown]
  - Infusion site discharge [Unknown]

NARRATIVE: CASE EVENT DATE: 202101
